FAERS Safety Report 4952424-1 (Version None)
Quarter: 2006Q1

REPORT INFORMATION
  Report Type: 
  Country: None (occurrence: None)
  Receive Date: 20060317
  Receipt Date: 20060307
  Transmission Date: 20060701
  Serious: Yes (Disabling, Other)
  Sender: FDA-Public Use
  Company Number: 2005JP002264

PATIENT
  Age: 12 Year
  Sex: Female
  Weight: 54.1141 kg

DRUGS (2)
  1. PROGRAF [Suspect]
     Indication: BONE MARROW TRANSPLANT
     Dosage: 0.02 MG/KG UID/QD IV DRIP
     Route: 041
     Dates: start: 20040602, end: 20040814
  2. METHYLPREDNISOLONE [Suspect]
     Indication: BONE MARROW TRANSPLANT
     Dosage: 1 MG/KG UID/QD IV BOLUS
     Route: 040
     Dates: start: 20040602

REACTIONS (17)
  - ACUTE RESPIRATORY DISTRESS SYNDROME [None]
  - BRONCHIOLITIS [None]
  - CYTOMEGALOVIRUS INFECTION [None]
  - DRUG INEFFECTIVE [None]
  - DRUG TOXICITY [None]
  - GRAFT VERSUS HOST DISEASE [None]
  - HERPES ZOSTER [None]
  - HYPERGLYCAEMIA [None]
  - HYPERTENSION [None]
  - PLATELET COUNT DECREASED [None]
  - POST PROCEDURAL COMPLICATION [None]
  - PULMONARY OEDEMA [None]
  - STAPHYLOCOCCAL SEPSIS [None]
  - SUBDURAL HAEMATOMA [None]
  - THROMBOTIC MICROANGIOPATHY [None]
  - TRANSFUSION-RELATED ACUTE LUNG INJURY [None]
  - WHITE BLOOD CELL COUNT DECREASED [None]
